FAERS Safety Report 7401428-8 (Version None)
Quarter: 2011Q2

REPORT INFORMATION
  Report Type: 
  Country: None (occurrence: None)
  Receive Date: 20110407
  Receipt Date: 20110329
  Transmission Date: 20111010
  Serious: Yes (Hospitalization, Other)
  Sender: FDA-Public Use
  Company Number: IE-AMGEN-IRLSP2011007954

PATIENT
  Age: 35 Year
  Sex: Female

DRUGS (10)
  1. LYRICA [Concomitant]
  2. LEVOMEPROMAZINE MALEATE [Concomitant]
  3. ZOTON [Concomitant]
  4. MINOCYCLINE [Concomitant]
  5. ARCOXIA [Concomitant]
  6. MINOCIN [Concomitant]
  7. METHADONE [Concomitant]
  8. VECTIBIX [Suspect]
     Indication: COLORECTAL CANCER
     Dosage: 4 MG/KG, Q2WK
     Route: 042
     Dates: start: 20100514
  9. EFFEXOR [Concomitant]
  10. CALCICHEW [Concomitant]

REACTIONS (6)
  - RASH [None]
  - PRURITUS [None]
  - BACK PAIN [None]
  - CHAPPED LIPS [None]
  - PARAESTHESIA [None]
  - NAIL DISORDER [None]
